FAERS Safety Report 7295067-X (Version None)
Quarter: 2011Q1

REPORT INFORMATION
  Report Type: 
  Country: None (occurrence: None)
  Receive Date: 20110216
  Receipt Date: 20110208
  Transmission Date: 20110831
  Serious: Yes (Hospitalization)
  Sender: FDA-Public Use
  Company Number: US-JNJFOC-20110105485

PATIENT
  Sex: Male
  Weight: 72.12 kg

DRUGS (9)
  1. ANTIHISTAMINES [Concomitant]
     Indication: PREMEDICATION
  2. STEROIDS NOS [Concomitant]
     Indication: PREMEDICATION
  3. STEROIDS NOS [Concomitant]
  4. REMICADE [Suspect]
     Indication: CROHN'S DISEASE
     Route: 042
  5. REMICADE [Suspect]
     Route: 042
  6. ACETAMINOPHEN [Concomitant]
     Indication: PREMEDICATION
  7. ANTIHISTAMINES [Concomitant]
  8. ACETAMINOPHEN [Concomitant]
  9. REMICADE [Suspect]
     Route: 042

REACTIONS (4)
  - ANAEMIA [None]
  - HYPOPHOSPHATAEMIA [None]
  - NEPHROPATHY [None]
  - ACIDOSIS [None]
